FAERS Safety Report 5748533-X (Version None)
Quarter: 2008Q2

REPORT INFORMATION
  Report Type: 
  Country: None (occurrence: None)
  Receive Date: 20080520
  Receipt Date: 20080514
  Transmission Date: 20081010
  Serious: Yes (Hospitalization)
  Sender: FDA-Public Use
  Company Number: CIO08009046

PATIENT
  Age: 40 Year
  Sex: Male
  Weight: 99.8 kg

DRUGS (1)
  1. SINEX 12-HOUR NASAL SPRAY OR MIST(CAMPHOR 0.034 MG, EUCALYPTUS OIL 0.0 [Suspect]
     Indication: NASAL SEPTUM DEVIATION
     Dosage: 1 SPRAY, OFF AND ON, INTRANASAL
     Route: 045
     Dates: start: 19980514, end: 20080511

REACTIONS (4)
  - ABDOMINAL PAIN [None]
  - DRUG INEFFECTIVE [None]
  - NASAL CONGESTION [None]
  - PULMONARY OEDEMA [None]
